FAERS Safety Report 20146564 (Version 1)
Quarter: 2021Q4

REPORT INFORMATION
  Report Type: Spontaneous
  Country: US (occurrence: None)
  Receive Date: 20211203
  Receipt Date: 20211203
  Transmission Date: 20220303
  Serious: Yes (Disabling)
  Sender: FDA-Public Use
  Company Number: None

PATIENT
  Age: 35 Year
  Sex: Female
  Weight: 80.55 kg

DRUGS (11)
  1. TACROLIMUS [Suspect]
     Active Substance: TACROLIMUS
     Indication: Dermatitis
     Dosage: OTHER QUANTITY : 1 GRAM;?FREQUENCY : TWICE A DAY;?
     Route: 061
     Dates: start: 20211029, end: 20211110
  2. TACROLIMUS [Suspect]
     Active Substance: TACROLIMUS
     Indication: Eczema
  3. Omeprazole 40 mg [Concomitant]
  4. CLONEZEPAM 1MG [Concomitant]
  5. HYDROCODONE [Concomitant]
     Active Substance: HYDROCODONE
  6. LIDOCAINE CREAM 4% [Concomitant]
  7. LIDOCAINE2.5%/PRILOCAINE2.5% CREAM [Concomitant]
  8. ACETAMINIPHEN [Concomitant]
  9. UNSPECIFIED INGREDIENT [Concomitant]
     Active Substance: UNSPECIFIED INGREDIENT
  10. MULTIVITAMIN GUMMIES [Concomitant]
  11. PROBIOTIC GUMMIES [Concomitant]

REACTIONS (2)
  - Pruritus [None]
  - Therapy cessation [None]

NARRATIVE: CASE EVENT DATE: 20211101
